FAERS Safety Report 16479535 (Version 1)
Quarter: 2019Q2

REPORT INFORMATION
  Report Type: Spontaneous
  Country: US (occurrence: US)
  Receive Date: 20190626
  Receipt Date: 20190626
  Transmission Date: 20190711
  Serious: No
  Sender: FDA-Public Use
  Company Number: US-009507513-1906USA009678

PATIENT
  Age: 42 Year
  Sex: Female

DRUGS (16)
  1. ATORVASTATIN [Concomitant]
     Active Substance: ATORVASTATIN
  2. ZANAFLEX [Concomitant]
     Active Substance: TIZANIDINE HYDROCHLORIDE
  3. LEVOTHYROXINE SODIUM. [Concomitant]
     Active Substance: LEVOTHYROXINE SODIUM
  4. ZOFRAN [Concomitant]
     Active Substance: ONDANSETRON HYDROCHLORIDE
  5. NORTRIPTYLINE [Concomitant]
     Active Substance: NORTRIPTYLINE
  6. FIBER [Concomitant]
     Active Substance: PSYLLIUM HUSK
  7. BELSOMRA [Suspect]
     Active Substance: SUVOREXANT
     Indication: INSOMNIA
     Dosage: 1 PILL A NIGHT
     Route: 048
     Dates: end: 20190623
  8. ASPIRIN. [Concomitant]
     Active Substance: ASPIRIN
  9. CALCIUM (UNSPECIFIED) [Concomitant]
     Active Substance: CALCIUM
  10. CINNAMON. [Concomitant]
     Active Substance: CINNAMON
  11. NEXIUM [Concomitant]
     Active Substance: ESOMEPRAZOLE MAGNESIUM
  12. IRON (UNSPECIFIED) [Concomitant]
     Active Substance: IRON
  13. FIORICET [Concomitant]
     Active Substance: ACETAMINOPHEN\BUTALBITAL\CAFFEINE
  14. MOEXIPRIL HYDROCHLORIDE. [Concomitant]
     Active Substance: MOEXIPRIL HYDROCHLORIDE
  15. MELOXICAM. [Concomitant]
     Active Substance: MELOXICAM
  16. NORVASC [Concomitant]
     Active Substance: AMLODIPINE BESYLATE

REACTIONS (3)
  - Product dose omission [Unknown]
  - Drug ineffective [Recovering/Resolving]
  - Somnolence [Recovering/Resolving]

NARRATIVE: CASE EVENT DATE: 20190623
